FAERS Safety Report 4517844-8 (Version None)
Quarter: 2004Q4

REPORT INFORMATION
  Report Type: 
  Country: None (occurrence: None)
  Receive Date: 20041203
  Receipt Date: 20041012
  Transmission Date: 20050328
  Serious: Yes (Hospitalization)
  Sender: FDA-Public Use
  Company Number: US-MERCK-0410USA01776

PATIENT

DRUGS (1)
  1. VIOXX [Suspect]
     Route: 048
     Dates: start: 20040401

REACTIONS (1)
  - CARDIAC FAILURE CONGESTIVE [None]
